FAERS Safety Report 6018359-0 (Version None)
Quarter: 2008Q4

REPORT INFORMATION
  Report Type: 
  Country: None (occurrence: None)
  Receive Date: 20081223
  Receipt Date: 20071102
  Transmission Date: 20090506
  Serious: Yes (Hospitalization)
  Sender: FDA-Public Use
  Company Number: FR-PFIZER INC-2007091223

PATIENT

DRUGS (14)
  1. BLINDED *PLACEBO [Suspect]
     Indication: PULMONARY HYPERTENSION
     Dosage: 20 MG, 3X/DAY
     Route: 048
     Dates: start: 20070802
  2. SILDENAFIL CITRATE [Suspect]
     Indication: PULMONARY HYPERTENSION
     Dosage: 20 MG, 3X/DAY
     Route: 048
     Dates: start: 20070802
  3. FLUINDIONE [Concomitant]
     Route: 048
     Dates: start: 20061018
  4. LEVOTHYROXINE SODIUM [Concomitant]
     Route: 048
     Dates: start: 19970101
  5. BOSENTAN [Concomitant]
     Route: 048
     Dates: start: 20061001
  6. FUROSEMIDE [Concomitant]
     Route: 048
     Dates: start: 20070703
  7. OMEPRAZOLE [Concomitant]
     Route: 048
     Dates: start: 20070314
  8. PILOCARPINE HYDROCHLORIDE [Concomitant]
     Route: 048
     Dates: start: 20061101
  9. PYOSTACINE [Concomitant]
     Dates: start: 20070207, end: 20070228
  10. BUFLOMEDIL [Concomitant]
  11. CLOPIDOGREL [Concomitant]
  12. DILTIAZEM [Concomitant]
  13. PANTOPRAZOLE SODIUM [Concomitant]
     Dates: end: 20070313
  14. FEROGRAD-500 [Concomitant]
     Dates: start: 20061213

REACTIONS (1)
  - ANAEMIA [None]
